FAERS Safety Report 12306514 (Version 1)
Quarter: 2016Q2

REPORT INFORMATION
  Report Type: Report from Study
  Country: US (occurrence: US)
  Receive Date: 20160426
  Receipt Date: 20160426
  Transmission Date: 20160815
  Serious: Yes (Other)
  Sender: FDA-Public Use
  Company Number: US-MYLANLABS-2016M1016109

PATIENT

DRUGS (1)
  1. LETROZOLE MYLAN [Suspect]
     Active Substance: LETROZOLE
     Indication: METASTASES TO PERITONEUM
     Dosage: 2.5 MG, QD
     Route: 048
     Dates: start: 20141122, end: 20160104

REACTIONS (2)
  - Small intestinal obstruction [Unknown]
  - Tumour marker increased [Unknown]
